FAERS Safety Report 12875966 (Version 1)
Quarter: 2016Q4

REPORT INFORMATION
  Report Type: Spontaneous
  Country: US (occurrence: US)
  Receive Date: 20161024
  Receipt Date: 20161024
  Transmission Date: 20170207
  Serious: No
  Sender: FDA-Public Use
  Company Number: US-JAZZ-2016-US-015175

PATIENT
  Sex: Female

DRUGS (30)
  1. AMOXI CLAV [Concomitant]
     Active Substance: AMOXICILLIN\CLAVULANATE POTASSIUM
  2. CYMBALTA [Concomitant]
     Active Substance: DULOXETINE HYDROCHLORIDE
  3. PROBIOTIC COMPLEX [Concomitant]
  4. VITAMIN C [Concomitant]
     Active Substance: ASCORBIC ACID
  5. BECONASE AQ [Concomitant]
     Active Substance: BECLOMETHASONE DIPROPIONATE MONOHYDRATE
  6. PLAQUENIL [Concomitant]
     Active Substance: HYDROXYCHLOROQUINE SULFATE
  7. VITAMIN D [Concomitant]
     Active Substance: CHOLECALCIFEROL
  8. ESTRACE [Concomitant]
     Active Substance: ESTRADIOL
  9. RANITIDINE. [Concomitant]
     Active Substance: RANITIDINE
  10. TURMERIC [Concomitant]
     Active Substance: TURMERIC
  11. XYREM [Suspect]
     Active Substance: SODIUM OXYBATE
     Indication: FIBROMYALGIA
     Dosage: 2.25 G, BID
     Route: 048
     Dates: start: 200904, end: 200904
  12. FLONASE ALLERGY RLF [Concomitant]
  13. VITAMIN B12 [Concomitant]
     Active Substance: CYANOCOBALAMIN
  14. VITAMIN D2 [Concomitant]
     Active Substance: ERGOCALCIFEROL
  15. ACETAMINOPHEN. [Concomitant]
     Active Substance: ACETAMINOPHEN
  16. TRICOR [Concomitant]
     Active Substance: FENOFIBRATE
  17. XYREM [Suspect]
     Active Substance: SODIUM OXYBATE
     Dosage: 3 G, BID
     Route: 048
     Dates: start: 201210, end: 2015
  18. AZELASTINE HCL [Concomitant]
     Active Substance: AZELASTINE HYDROCHLORIDE
  19. OMEGA 3 [Concomitant]
     Active Substance: OMEGA-3 FATTY ACIDS
  20. ZINC CHELATE [Concomitant]
  21. XYREM [Suspect]
     Active Substance: SODIUM OXYBATE
     Dosage: 3 G, BID
     Route: 048
     Dates: start: 201601
  22. CITRACAL [Concomitant]
     Active Substance: CALCIUM CITRATE
  23. GLUCOSAMINE [Concomitant]
     Active Substance: GLUCOSAMINE
  24. LIMBREL [Concomitant]
     Active Substance: FLAVOCOXID
  25. MAGNESIUM [Concomitant]
     Active Substance: MAGNESIUM
  26. MULTIVITAMINS [Concomitant]
     Active Substance: VITAMINS
  27. XYREM [Suspect]
     Active Substance: SODIUM OXYBATE
     Dosage: DOSE ADJUSTMENTS
     Route: 048
     Dates: start: 200904, end: 201210
  28. GAS RELIEF [Concomitant]
     Active Substance: DIMETHICONE
  29. HEMORRODIL [Concomitant]
     Active Substance: COCOA BUTTER\PHENYLEPHRINE HYDROCHLORIDE
  30. MACRODANTIN [Concomitant]
     Active Substance: NITROFURANTOIN

REACTIONS (1)
  - Insomnia [Unknown]
